FAERS Safety Report 7245828-8 (Version None)
Quarter: 2011Q1

REPORT INFORMATION
  Report Type: 
  Country: None (occurrence: None)
  Receive Date: 20110126
  Receipt Date: 20110119
  Transmission Date: 20110831
  Serious: Yes (Hospitalization)
  Sender: FDA-Public Use
  Company Number: JP-MERCK-1101USA00845

PATIENT
  Age: 65 Year
  Sex: Female

DRUGS (9)
  1. VERAPAMIL HCL [Concomitant]
     Indication: CARDIAC FAILURE
     Route: 048
     Dates: start: 20101230, end: 20110102
  2. ROCEPHIN [Concomitant]
     Indication: INFLAMMATION
     Route: 042
     Dates: start: 20101224, end: 20101230
  3. SAXIZON [Concomitant]
     Indication: ASTHMA
     Route: 042
     Dates: start: 20101224, end: 20110103
  4. PREDNISOLONE [Concomitant]
     Indication: ASTHMA
     Route: 048
     Dates: start: 20101230, end: 20110102
  5. SOLULACT TMR [Concomitant]
     Indication: FLUID REPLACEMENT
     Dosage: 500ML X1-TIWCE A DAY
     Route: 042
     Dates: start: 20101224, end: 20110105
  6. GOODMIN [Concomitant]
     Indication: INSOMNIA
     Route: 048
     Dates: start: 20101230, end: 20110102
  7. JANUVIA [Suspect]
     Indication: TYPE 2 DIABETES MELLITUS
     Dosage: DAILY DOSEAGE UNKNOWN
     Route: 048
     Dates: start: 20101228, end: 20110102
  8. DIGOXIN [Concomitant]
     Indication: TACHYCARDIA
     Route: 048
     Dates: start: 20101228, end: 20110102
  9. LASIX [Concomitant]
     Indication: CARDIAC FAILURE
     Route: 048
     Dates: start: 20101228, end: 20110102

REACTIONS (3)
  - HEPATIC STEATOSIS [None]
  - PERITONITIS [None]
  - PANCREATITIS ACUTE [None]
